FAERS Safety Report 7788875-X (Version None)
Quarter: 2011Q3

REPORT INFORMATION
  Report Type: 
  Country: None (occurrence: None)
  Receive Date: 20110928
  Receipt Date: 20110917
  Transmission Date: 20111222
  Serious: Yes (Other)
  Sender: FDA-Public Use
  Company Number: IPC201109-003177

PATIENT
  Age: 68 Year
  Sex: Female

DRUGS (2)
  1. ATENOLOL [Suspect]
     Indication: HYPERTENSION
     Dosage: 50 MG
  2. FUROSEMIDE [Suspect]
     Indication: CARDIAC FAILURE
     Dosage: 20 MG

REACTIONS (5)
  - COUGH [None]
  - OEDEMA PERIPHERAL [None]
  - HYPERTENSION [None]
  - CARDIAC FAILURE [None]
  - BLOOD PRESSURE DECREASED [None]
